FAERS Safety Report 4579787-3 (Version None)
Quarter: 2005Q1

REPORT INFORMATION
  Report Type: 
  Country: None (occurrence: None)
  Receive Date: 20050210
  Receipt Date: 20050202
  Transmission Date: 20050727
  Serious: Yes (Other)
  Sender: FDA-Public Use
  Company Number: 2005-02-0058

PATIENT
  Sex: Male

DRUGS (4)
  1. VIRAFERONPEG [Suspect]
     Indication: HEPATITIS C
     Dates: start: 20010101, end: 20030101
  2. VIRAFERONPEG [Suspect]
     Indication: HEPATITIS C
     Dates: start: 20030101, end: 20030101
  3. REBETOL [Suspect]
     Indication: HEPATITIS C
     Dosage: 800MG ORAL
     Route: 048
     Dates: start: 20010101, end: 20030101
  4. REBETOL [Suspect]
     Indication: HEPATITIS C
     Dosage: 800MG ORAL
     Route: 048
     Dates: start: 20030101, end: 20030101

REACTIONS (1)
  - PNEUMOTHORAX [None]
